FAERS Safety Report 17952037 (Version 1)
Quarter: 2020Q2

REPORT INFORMATION
  Report Type: Spontaneous
  Country: JP (occurrence: JP)
  Receive Date: 20200626
  Receipt Date: 20200626
  Transmission Date: 20200714
  Serious: Yes (Other)
  Sender: FDA-Public Use
  Company Number: JP-JNJFOC-20200629795

PATIENT

DRUGS (1)
  1. STELARA [Suspect]
     Active Substance: USTEKINUMAB
     Indication: PRODUCT USED FOR UNKNOWN INDICATION
     Dosage: USTEKINUMAB(GENETICAL RECOMBINATION): 45MG
     Route: 058

REACTIONS (2)
  - Bone marrow failure [Unknown]
  - Abdominal discomfort [Unknown]
